FAERS Safety Report 23836933 (Version 1)
Quarter: 2024Q2

REPORT INFORMATION
  Report Type: Spontaneous
  Country: CA (occurrence: CA)
  Receive Date: 20240509
  Receipt Date: 20240509
  Transmission Date: 20240715
  Serious: Yes (Life-Threatening, Hospitalization)
  Sender: FDA-Public Use
  Company Number: CA-FreseniusKabi-FK202407277

PATIENT
  Age: 44 Year
  Sex: Female

DRUGS (2)
  1. DIPYRIDAMOLE [Suspect]
     Active Substance: DIPYRIDAMOLE
     Indication: Troponin increased
     Dosage: DOSAGE FROM: LIQUID INTRAVENOUS?FREQUENCY: ONCE
     Route: 042
  2. DIPYRIDAMOLE [Suspect]
     Active Substance: DIPYRIDAMOLE
     Indication: Sepsis

REACTIONS (2)
  - Cardio-respiratory arrest [Recovered/Resolved]
  - Hypersensitivity [Recovered/Resolved]
